FAERS Safety Report 6358556-8 (Version None)
Quarter: 2009Q3

REPORT INFORMATION
  Report Type: 
  Country: None (occurrence: None)
  Receive Date: 20090914
  Receipt Date: 20090824
  Transmission Date: 20100115
  Serious: Yes (Other)
  Sender: FDA-Public Use
  Company Number: 2280705-2009-00012

PATIENT
  Age: 33 Year
  Sex: Female

DRUGS (1)
  1. CLOSE UP WHITENING SPARKLE GEL TOOTHPASTE [Suspect]
     Indication: DENTAL DISORDER PROPHYLAXIS
     Dosage: USED FOR ONE YEAR

REACTIONS (7)
  - DEHYDRATION [None]
  - DYSGEUSIA [None]
  - FATIGUE [None]
  - NAUSEA [None]
  - POLLAKIURIA [None]
  - SLEEP DISORDER [None]
  - TACHYCARDIA [None]
